FAERS Safety Report 16364080 (Version 7)
Quarter: 2019Q3

REPORT INFORMATION
  Report Type: Report from Study
  Country: AU (occurrence: AU)
  Receive Date: 20190528
  Receipt Date: 20190916
  Transmission Date: 20191004
  Serious: Yes (Other)
  Sender: FDA-Public Use
  Company Number: AU-PFIZER INC-2019218958

PATIENT
  Age: 78 Year
  Sex: Female

DRUGS (4)
  1. FRUSEMIDE AN [Concomitant]
     Indication: FLUID RETENTION
     Dosage: 20 MG, UNK
     Route: 048
  2. LORLATINIB [Suspect]
     Active Substance: LORLATINIB
     Dosage: 50 MG, UNK
     Route: 048
     Dates: start: 20190125
  3. LORLATINIB [Suspect]
     Active Substance: LORLATINIB
     Dosage: 75 MG, UNK
  4. LORLATINIB [Suspect]
     Active Substance: LORLATINIB
     Indication: NON-SMALL CELL LUNG CANCER
     Dosage: 100 MG, DAILY
     Route: 048
     Dates: start: 201903

REACTIONS (7)
  - Dyspnoea [Not Recovered/Not Resolved]
  - Interstitial lung disease [Recovering/Resolving]
  - Chronic obstructive pulmonary disease [Recovering/Resolving]
  - Pulmonary hypertension [Recovered/Resolved]
  - Oedema peripheral [Recovering/Resolving]
  - Lower respiratory tract infection [Not Recovered/Not Resolved]
  - Pleural effusion [Recovering/Resolving]

NARRATIVE: CASE EVENT DATE: 201905
